FAERS Safety Report 20461557 (Version 4)
Quarter: 2022Q3

REPORT INFORMATION
  Report Type: Spontaneous
  Country: US (occurrence: US)
  Receive Date: 20220211
  Receipt Date: 20220822
  Transmission Date: 20221026
  Serious: Yes (Other)
  Sender: FDA-Public Use
  Company Number: US-GILEAD-2022-0569091

PATIENT
  Sex: Male
  Weight: 97.506 kg

DRUGS (46)
  1. ATRIPLA [Suspect]
     Active Substance: EFAVIRENZ\EMTRICITABINE\TENOFOVIR DISOPROXIL FUMARATE
     Indication: HIV infection
     Dosage: UNK
     Route: 048
     Dates: start: 2006
  2. ATRIPLA [Suspect]
     Active Substance: EFAVIRENZ\EMTRICITABINE\TENOFOVIR DISOPROXIL FUMARATE
     Dosage: UNK
     Route: 048
     Dates: start: 201002, end: 201104
  3. TRUVADA [Suspect]
     Active Substance: EMTRICITABINE\TENOFOVIR DISOPROXIL FUMARATE
     Indication: HIV infection
     Dosage: UNK
     Route: 048
     Dates: start: 201104, end: 201303
  4. EMTRIVA [Concomitant]
     Active Substance: EMTRICITABINE
  5. NORVIR [Concomitant]
     Active Substance: RITONAVIR
  6. PREZCOBIX [Concomitant]
     Active Substance: COBICISTAT\DARUNAVIR ETHANOLATE
  7. PREZISTA [Concomitant]
     Active Substance: DARUNAVIR ETHANOLATE
  8. TIVICAY [Concomitant]
     Active Substance: DOLUTEGRAVIR SODIUM
  9. ZOLPIDEM [Concomitant]
     Active Substance: ZOLPIDEM TARTRATE
  10. MIRTAZAPINE [Concomitant]
     Active Substance: MIRTAZAPINE
  11. IBUPROFEN [Concomitant]
     Active Substance: IBUPROFEN
  12. EXTRA STRENGTH HEADACHE RELIEF [Concomitant]
     Active Substance: ACETAMINOPHEN\ASPIRIN\CAFFEINE
  13. ALBUTEROL [Concomitant]
     Active Substance: ALBUTEROL
  14. ASCORBIC ACID [Concomitant]
     Active Substance: ASCORBIC ACID
  15. VITAMIN D NOS [Concomitant]
     Active Substance: VITAMIN D NOS
  16. SUMATRIPTAN [Concomitant]
     Active Substance: SUMATRIPTAN
  17. AMOXICILLIN [Concomitant]
     Active Substance: AMOXICILLIN
  18. METHYLPREDNISOLONE [Concomitant]
     Active Substance: METHYLPREDNISOLONE
  19. BACTRIM [Concomitant]
     Active Substance: SULFAMETHOXAZOLE\TRIMETHOPRIM
  20. AZITHROMYCIN [Concomitant]
     Active Substance: AZITHROMYCIN
  21. LEVOFLOXACIN [Concomitant]
     Active Substance: LEVOFLOXACIN
  22. MUPIROCIN [Concomitant]
     Active Substance: MUPIROCIN
  23. ERYTHROMYCIN [Concomitant]
     Active Substance: ERYTHROMYCIN
  24. VENLAFAXINE [Concomitant]
     Active Substance: VENLAFAXINE HYDROCHLORIDE
  25. PROCHLORPERAZINE [Concomitant]
     Active Substance: PROCHLORPERAZINE
  26. ESZOPICLONE [Concomitant]
     Active Substance: ESZOPICLONE
  27. ESCITALOPRAM [Concomitant]
     Active Substance: ESCITALOPRAM OXALATE
  28. FLUOCINONIDE [Concomitant]
     Active Substance: FLUOCINONIDE
  29. OXYCODONE [Concomitant]
     Active Substance: OXYCODONE
  30. CYCLOBENZAPRINE [Concomitant]
     Active Substance: CYCLOBENZAPRINE
  31. CLONAZEPAM [Concomitant]
     Active Substance: CLONAZEPAM
  32. TRIAZOLAM [Concomitant]
     Active Substance: TRIAZOLAM
  33. TRAMADOL [Concomitant]
     Active Substance: TRAMADOL
  34. TRAZODONE [Concomitant]
     Active Substance: TRAZODONE HYDROCHLORIDE
  35. RIZATRIPTAN [Concomitant]
     Active Substance: RIZATRIPTAN
  36. QUETIAPINE [Concomitant]
     Active Substance: QUETIAPINE
  37. HYDROXYZINE [Concomitant]
     Active Substance: HYDROXYZINE HYDROCHLORIDE
  38. DOXEPIN [Concomitant]
     Active Substance: DOXEPIN
  39. MELATONIN [Concomitant]
     Active Substance: MELATONIN
  40. CLONIDINE [Concomitant]
     Active Substance: CLONIDINE
  41. DAPSONE [Concomitant]
     Active Substance: DAPSONE
  42. DICLOXACILLIN [Concomitant]
     Active Substance: DICLOXACILLIN
  43. TERBINAFINE [Concomitant]
     Active Substance: TERBINAFINE
  44. BETAMETHASONE [Concomitant]
     Active Substance: BETAMETHASONE
  45. PERMETHRINE [Concomitant]
  46. HYDROCODONE [Concomitant]
     Active Substance: HYDROCODONE

REACTIONS (12)
  - Chronic kidney disease [Not Recovered/Not Resolved]
  - Drug ineffective [Unknown]
  - Emotional distress [Not Recovered/Not Resolved]
  - Anhedonia [Not Recovered/Not Resolved]
  - Anxiety [Not Recovered/Not Resolved]
  - Pain [Not Recovered/Not Resolved]
  - Gout [Not Recovered/Not Resolved]
  - Gait disturbance [Unknown]
  - Pain in extremity [Unknown]
  - Synovial cyst [Unknown]
  - Hypertension [Not Recovered/Not Resolved]
  - General physical health deterioration [Not Recovered/Not Resolved]

NARRATIVE: CASE EVENT DATE: 20080101
